FAERS Safety Report 9881933 (Version 1)
Quarter: 2014Q1

REPORT INFORMATION
  Report Type: Spontaneous
  Country: GB (occurrence: GB)
  Receive Date: 20140207
  Receipt Date: 20140207
  Transmission Date: 20141002
  Serious: Yes (Disabling)
  Sender: FDA-Public Use
  Company Number: GB-WATSON-2014-01532

PATIENT
  Age: 60 Year
  Sex: Male
  Weight: 83 kg

DRUGS (12)
  1. SIMVASTATIN (UNKNOWN) [Suspect]
     Indication: HYPERCHOLESTEROLAEMIA
     Dosage: UNK; FORGOT DOSAGE
     Route: 048
     Dates: end: 20100404
  2. ROSUVASTATIN (UNKNOWN) [Suspect]
     Indication: HYPERCHOLESTEROLAEMIA
     Dosage: UNK
     Route: 065
  3. INSULIN GLULISINE [Concomitant]
     Indication: PRODUCT USED FOR UNKNOWN INDICATION
     Dosage: 3 DF, UNKNOWN
     Route: 065
  4. ASPIRIN [Concomitant]
     Indication: PRODUCT USED FOR UNKNOWN INDICATION
     Dosage: 75 MG, DAILY
     Route: 065
  5. METFORMIN [Concomitant]
     Indication: PRODUCT USED FOR UNKNOWN INDICATION
     Dosage: 1000 MG, BID
     Route: 065
  6. INSULIN GLARGINE [Concomitant]
     Indication: PRODUCT USED FOR UNKNOWN INDICATION
     Dosage: 30 IU, DAILY; INJECTION EVENING.
     Route: 065
  7. CO-CODAMOL [Concomitant]
     Indication: PRODUCT USED FOR UNKNOWN INDICATION
     Dosage: UNK
     Route: 065
  8. IBUPROFEN [Concomitant]
     Indication: PRODUCT USED FOR UNKNOWN INDICATION
     Dosage: 600 MG, UNKNOWN
     Route: 065
  9. OMEPRAZOLE [Concomitant]
     Indication: PRODUCT USED FOR UNKNOWN INDICATION
     Dosage: 20 MG, UNKNOWN
     Route: 065
     Dates: start: 201311
  10. LAXIDO [Concomitant]
     Indication: GASTROINTESTINAL DISORDER
     Dosage: UNK; AS NECESSARY
     Route: 065
  11. VOLTAROL                           /00372302/ [Concomitant]
     Indication: ARTHRALGIA
     Dosage: UNK
     Route: 065
  12. DEEP HEAT                          /00735901/ [Concomitant]
     Indication: ARTHRALGIA
     Dosage: UNK; APPLIED ON A MORNING TO KNEES TO RELIEVE PAIN; DAILY
     Route: 065

REACTIONS (2)
  - Amnesia [Recovered/Resolved]
  - Muscle atrophy [Recovered/Resolved]
